FAERS Safety Report 23156122 (Version 2)
Quarter: 2023Q4

REPORT INFORMATION
  Report Type: Spontaneous
  Country: HK (occurrence: HK)
  Receive Date: 20231107
  Receipt Date: 20231121
  Transmission Date: 20240110
  Serious: Yes (Death, Hospitalization, Other)
  Sender: FDA-Public Use
  Company Number: HK-009507513-2309HKG000907

PATIENT
  Sex: Female

DRUGS (1)
  1. TUKYSA [Suspect]
     Active Substance: TUCATINIB
     Indication: HER2 positive breast cancer
     Dosage: 150MG BD
     Route: 048
     Dates: start: 20230830, end: 202309

REACTIONS (2)
  - Malignant neoplasm progression [Fatal]
  - Product use issue [Unknown]
